FAERS Safety Report 9539098 (Version 1)
Quarter: 2013Q3

REPORT INFORMATION
  Report Type: Spontaneous
  Country: US (occurrence: US)
  Receive Date: 20130920
  Receipt Date: 20130920
  Transmission Date: 20140515
  Serious: Yes (Other)
  Sender: FDA-Public Use
  Company Number: US-BAYER-2013-113756

PATIENT
  Age: 23 Year
  Sex: Female
  Weight: 121.9 kg

DRUGS (6)
  1. OCELLA [Suspect]
  2. NEURONTIN [Concomitant]
  3. ALLEGRA [Concomitant]
  4. LEXAPRO [Concomitant]
  5. RELAFEN [Concomitant]
  6. MIRAPEX [Concomitant]

REACTIONS (1)
  - Deep vein thrombosis [None]
